FAERS Safety Report 18298400 (Version 1)
Quarter: 2020Q3

REPORT INFORMATION
  Report Type: Spontaneous
  Country: US (occurrence: US)
  Receive Date: 20200922
  Receipt Date: 20200922
  Transmission Date: 20201103
  Serious: No
  Sender: FDA-Public Use
  Company Number: US-TEVA-2020-US-1828846

PATIENT
  Sex: Female

DRUGS (1)
  1. ACITRETIN TEVA [Suspect]
     Active Substance: ACITRETIN
     Indication: PSORIASIS
     Dates: start: 20200828

REACTIONS (2)
  - Nausea [Unknown]
  - Intentional dose omission [Unknown]

NARRATIVE: CASE EVENT DATE: 202008
